FAERS Safety Report 11045753 (Version 2)
Quarter: 2015Q2

REPORT INFORMATION
  Report Type: Spontaneous
  Country: DE (occurrence: DE)
  Receive Date: 20150417
  Receipt Date: 20150521
  Transmission Date: 20150821
  Serious: Yes (Life-Threatening, Hospitalization, Other)
  Sender: FDA-Public Use
  Company Number: DE-GLAXOSMITHKLINE-DE2015GSK049313

PATIENT
  Age: 72 Year
  Sex: Female
  Weight: 45 kg

DRUGS (9)
  1. TORASEMID [Concomitant]
     Active Substance: TORSEMIDE
     Route: 048
  2. XARELTO [Concomitant]
     Active Substance: RIVAROXABAN
     Route: 048
  3. IRBESARTAN. [Concomitant]
     Active Substance: IRBESARTAN
     Route: 048
  4. ALLOPURINOL. [Concomitant]
     Active Substance: ALLOPURINOL
     Route: 048
  5. MAGNESIUM [Concomitant]
     Active Substance: MAGNESIUM
     Route: 048
  6. METOPROLOL [Concomitant]
     Active Substance: METOPROLOL
     Route: 048
  7. CEFUROXIME. [Suspect]
     Active Substance: CEFUROXIME
     Indication: PNEUMONIA
     Dosage: 750 MG, UNK
     Route: 042
     Dates: start: 20150318, end: 20150318
  8. PREDNISOLON [Concomitant]
     Active Substance: PREDNISOLONE
     Indication: LUNG DISORDER
     Route: 048
  9. VIGANTOLETTEN [Concomitant]
     Active Substance: CHOLECALCIFEROL

REACTIONS (1)
  - Seizure [Not Recovered/Not Resolved]

NARRATIVE: CASE EVENT DATE: 20150318
